FAERS Safety Report 7946476-4 (Version None)
Quarter: 2011Q4

REPORT INFORMATION
  Report Type: 
  Country: None (occurrence: None)
  Receive Date: 20111123
  Receipt Date: 20111108
  Transmission Date: 20120403
  Serious: Yes (Hospitalization)
  Sender: FDA-Public Use
  Company Number: TCI2011A05735

PATIENT

DRUGS (1)
  1. LANSOPRAZOLE [Suspect]
     Indication: GASTROOESOPHAGEAL REFLUX DISEASE
     Dosage: PER ORAL
     Route: 048

REACTIONS (4)
  - COLITIS MICROSCOPIC [None]
  - INFECTIOUS PERITONITIS [None]
  - LARGE INTESTINAL ULCER [None]
  - SALPINGO-OOPHORITIS [None]
